FAERS Safety Report 25537795 (Version 2)
Quarter: 2025Q3

REPORT INFORMATION
  Report Type: Spontaneous
  Country: US (occurrence: US)
  Receive Date: 20250710
  Receipt Date: 20250717
  Transmission Date: 20251020
  Serious: No
  Sender: ROCHE
  Company Number: US-ROCHE-10000328603

PATIENT
  Age: 28 Year
  Sex: Female
  Weight: 76.66 kg

DRUGS (5)
  1. XOLAIR [Suspect]
     Active Substance: OMALIZUMAB
     Indication: Urticaria
     Route: 058
     Dates: start: 2024
  2. XOLAIR [Suspect]
     Active Substance: OMALIZUMAB
     Dosage: STRENGTH:300MG/2ML
     Route: 058
     Dates: start: 202506
  3. KEPPRA [Concomitant]
     Active Substance: LEVETIRACETAM
     Indication: Epilepsy
     Route: 048
  4. LAMOTRIGINE [Concomitant]
     Active Substance: LAMOTRIGINE
     Indication: Epilepsy
     Route: 048
     Dates: start: 202410
  5. CLOBAZAM [Concomitant]
     Active Substance: CLOBAZAM
     Indication: Epilepsy
     Dosage: (4) 10 MG TABLETS
     Route: 048

REACTIONS (6)
  - Product dose omission issue [Unknown]
  - Device defective [Unknown]
  - Product complaint [Unknown]
  - Accidental exposure to product [Unknown]
  - No adverse event [Unknown]
  - Needle issue [Unknown]

NARRATIVE: CASE EVENT DATE: 20250630
